FAERS Safety Report 11857830 (Version 1)
Quarter: 2015Q4

REPORT INFORMATION
  Report Type: Spontaneous
  Country: GB (occurrence: GB)
  Receive Date: 20151222
  Receipt Date: 20151222
  Transmission Date: 20160305
  Serious: Yes (Hospitalization)
  Sender: FDA-Public Use
  Company Number: GB-PERRIGO-15GB013014

PATIENT
  Age: 15 Month
  Sex: Female

DRUGS (1)
  1. ACETAMINOPHEN 120MG 579 [Suspect]
     Active Substance: ACETAMINOPHEN
     Dosage: 60 MG/KG, QD
     Route: 065

REACTIONS (5)
  - Kussmaul respiration [Recovered/Resolved]
  - Metabolic acidosis [Recovered/Resolved]
  - Unresponsive to stimuli [Recovered/Resolved]
  - Tachycardia [Recovered/Resolved]
  - Aminoaciduria [Recovered/Resolved]
